FAERS Safety Report 5926398-0 (Version None)
Quarter: 2008Q4

REPORT INFORMATION
  Report Type: 
  Country: None (occurrence: None)
  Receive Date: 20081022
  Receipt Date: 20081014
  Transmission Date: 20090506
  Serious: Yes (Hospitalization, Other)
  Sender: FDA-Public Use
  Company Number: US-AMGEN-QUU307127

PATIENT
  Sex: Female
  Weight: 52.5 kg

DRUGS (14)
  1. NEULASTA [Suspect]
     Indication: CHEMOTHERAPY
     Route: 058
     Dates: start: 20080606, end: 20080606
  2. TAXOL [Concomitant]
  3. UNSPECIFIED ANTIBIOTIC [Concomitant]
  4. RADIATION THERAPY [Concomitant]
  5. LORAZEPAM [Concomitant]
     Dates: start: 20080311
  6. ZOFRAN [Concomitant]
     Dates: start: 20080311
  7. COMPAZINE [Concomitant]
     Dates: start: 20080311
  8. DARVOCET-N 100 [Concomitant]
     Dates: start: 20080423
  9. UNSPECIFIED MEDICATION [Concomitant]
     Dates: start: 20080519
  10. LEVAQUIN [Concomitant]
     Dates: start: 20080627
  11. ARIMIDEX [Concomitant]
     Dates: start: 20080917
  12. ADRIAMYCIN PFS [Concomitant]
     Dates: start: 20080606
  13. CYTOXAN [Concomitant]
     Dates: start: 20080606
  14. WELLBUTRIN [Concomitant]

REACTIONS (8)
  - ANAEMIA [None]
  - ARTHRALGIA [None]
  - DYSARTHRIA [None]
  - FUNGAL INFECTION [None]
  - HEMIPARESIS [None]
  - MENTAL IMPAIRMENT [None]
  - SPEECH DISORDER [None]
  - WHITE BLOOD CELL COUNT DECREASED [None]
